FAERS Safety Report 6051458-6 (Version None)
Quarter: 2009Q1

REPORT INFORMATION
  Report Type: 
  Country: None (occurrence: None)
  Receive Date: 20090126
  Receipt Date: 20090116
  Transmission Date: 20090719
  Serious: Yes (Hospitalization)
  Sender: FDA-Public Use
  Company Number: A0696649A

PATIENT
  Age: 55 Year
  Sex: Female
  Weight: 77.3 kg

DRUGS (10)
  1. AVANDIA [Suspect]
     Dosage: 4MG TWICE PER DAY
     Route: 048
     Dates: start: 20060601, end: 20070613
  2. PLAVIX [Concomitant]
  3. LISINOPRIL [Concomitant]
  4. DYNACIRC [Concomitant]
  5. DILTIAZEM [Concomitant]
  6. PREVACID [Concomitant]
  7. SIMVASTATIN [Concomitant]
  8. HYZAAR [Concomitant]
  9. GLIMEPIRIDE [Concomitant]
  10. METFORMIN [Concomitant]

REACTIONS (2)
  - CARDIAC FAILURE CONGESTIVE [None]
  - RESPIRATORY FAILURE [None]
